FAERS Safety Report 8457181-2 (Version None)
Quarter: 2012Q2

REPORT INFORMATION
  Report Type: 
  Country: None (occurrence: None)
  Receive Date: 20120621
  Receipt Date: 20120614
  Transmission Date: 20120825
  Serious: Yes (Hospitalization, Disabling)
  Sender: FDA-Public Use
  Company Number: US-B.I. PHARMACEUTICALS,INC./RIDGEFIELD-2012-BP-10178BP

PATIENT
  Sex: Female
  Weight: 89.36 kg

DRUGS (10)
  1. PRADAXA [Suspect]
     Indication: THROMBOSIS PROPHYLAXIS
     Dosage: 300 MG
     Route: 048
     Dates: start: 20110401, end: 20110401
  2. SYNTHROID [Concomitant]
     Indication: HYPOTHYROIDISM
     Dosage: 0.112 MCG
     Route: 048
  3. TRIAMTERENE AND HYDROCHLOROTHIAZIDE [Concomitant]
     Indication: OEDEMA
  4. CALCITRIOL [Concomitant]
     Indication: SUPPLEMENTATION THERAPY
  5. CYMBALTA [Concomitant]
     Indication: DEPRESSION
     Dosage: 16 MG
     Route: 048
  6. LOSARTAN POTASSIUM [Concomitant]
     Indication: HYPERTENSION
     Dosage: 100 MG
     Route: 048
  7. METOPROLOL [Concomitant]
     Indication: HYPERTENSION
     Dosage: 100 MG
     Route: 048
  8. PANTOPRAZOLE [Concomitant]
     Indication: GASTROOESOPHAGEAL REFLUX DISEASE
  9. PRADAXA [Suspect]
     Indication: DEEP VEIN THROMBOSIS
     Dates: start: 20120120, end: 20120420
  10. DEPLIN [Concomitant]
     Indication: SUPPLEMENTATION THERAPY
     Dosage: 0.5 MG
     Route: 048

REACTIONS (4)
  - GASTROOESOPHAGEAL REFLUX DISEASE [None]
  - GASTROINTESTINAL HAEMORRHAGE [None]
  - VAGINAL HAEMORRHAGE [None]
  - TACHYCARDIA [None]
